FAERS Safety Report 19012602 (Version 1)
Quarter: 2021Q1

REPORT INFORMATION
  Report Type: Report from Study
  Country: US (occurrence: US)
  Receive Date: 20210316
  Receipt Date: 20210316
  Transmission Date: 20210420
  Serious: Yes (Hospitalization)
  Sender: FDA-Public Use
  Company Number: US-PFIZER INC-2021239634

PATIENT
  Age: 76 Year
  Sex: Male

DRUGS (8)
  1. IRINOTECAN HCL [Suspect]
     Active Substance: IRINOTECAN HYDROCHLORIDE
     Dosage: 252 MG DAY 15
     Route: 042
     Dates: start: 20200521, end: 20200521
  2. FLUOROURACIL. [Suspect]
     Active Substance: FLUOROURACIL
     Dosage: 350 MG DAY 15
     Route: 042
     Dates: start: 20200521, end: 20200521
  3. LEUCOVORIN. [Suspect]
     Active Substance: LEUCOVORIN
     Indication: DUCTAL ADENOCARCINOMA OF PANCREAS
     Dosage: 364 MG
     Route: 042
     Dates: start: 20200507
  4. (ERYASPASE) L?ASPARAGINASE ENCAPSULATED IN RED BLOOD CELLS [Suspect]
     Active Substance: ASPARAGINASE
     Indication: DUCTAL ADENOCARCINOMA OF PANCREAS
     Dosage: 75 U/KG, 163 ML ADMINISTERED EVERY TWO WEEKS, EACH 4?WEEK CYCLE
     Route: 042
     Dates: start: 20200507, end: 20200521
  5. FLUOROURACIL. [Suspect]
     Active Substance: FLUOROURACIL
     Indication: DUCTAL ADENOCARCINOMA OF PANCREAS
     Dosage: 364 MG DAY 1
     Route: 042
     Dates: start: 20200507
  6. ELIQUIS [Concomitant]
     Active Substance: APIXABAN
     Indication: PLEURAL EFFUSION
  7. IRINOTECAN HCL [Suspect]
     Active Substance: IRINOTECAN HYDROCHLORIDE
     Indication: DUCTAL ADENOCARCINOMA OF PANCREAS
     Dosage: 327.6 MG DAY 1
     Route: 042
     Dates: start: 20200507
  8. LEUCOVORIN. [Suspect]
     Active Substance: LEUCOVORIN
     Dosage: 300 MG
     Route: 042
     Dates: start: 20200521, end: 20200521

REACTIONS (1)
  - Hypotension [Recovered/Resolved]

NARRATIVE: CASE EVENT DATE: 20200617
